FAERS Safety Report 21487489 (Version 2)
Quarter: 2022Q4

REPORT INFORMATION
  Report Type: Spontaneous
  Country: US (occurrence: None)
  Receive Date: 20221020
  Receipt Date: 20221025
  Transmission Date: 20230112
  Serious: No
  Sender: FDA-Public Use
  Company Number: 2022A345582

PATIENT
  Sex: Female
  Weight: 99.8 kg

DRUGS (8)
  1. BUDESONIDE\FORMOTEROL\GLYCOPYRRONIUM [Suspect]
     Active Substance: BUDESONIDE\FORMOTEROL\GLYCOPYRRONIUM
     Indication: Chest discomfort
     Dosage: 160/9/4.8MCG 2 PUFFS TWICE A DAY
     Route: 055
  2. BUDESONIDE\FORMOTEROL\GLYCOPYRRONIUM [Suspect]
     Active Substance: BUDESONIDE\FORMOTEROL\GLYCOPYRRONIUM
     Indication: Fatigue
     Dosage: 160/9/4.8MCG 2 PUFFS TWICE A DAY
     Route: 055
  3. SYMBICORT [Suspect]
     Active Substance: BUDESONIDE\FORMOTEROL FUMARATE DIHYDRATE
     Dosage: 2 PUFFS TWICE A DAY
     Route: 055
  4. ZOPINEX [Concomitant]
     Indication: Dyspnoea
  5. ALBUTEROL [Concomitant]
     Active Substance: ALBUTEROL
  6. NEOMYCIN [Concomitant]
     Active Substance: NEOMYCIN
     Indication: Glaucoma
     Route: 065
  7. TOBRAMYCIN [Concomitant]
     Active Substance: TOBRAMYCIN
     Indication: Glaucoma
     Route: 065
  8. ARLEX [Concomitant]
     Indication: Glaucoma
     Route: 065

REACTIONS (17)
  - Oedema peripheral [Unknown]
  - Asthma [Unknown]
  - Dyspnoea [Unknown]
  - Drug intolerance [Unknown]
  - Immune system disorder [Unknown]
  - Ocular hyperaemia [Unknown]
  - Full blood count increased [Unknown]
  - Pain [Unknown]
  - Emotional disorder [Unknown]
  - Hypersensitivity [Unknown]
  - Chest discomfort [Unknown]
  - Muscle spasms [Unknown]
  - Tremor [Unknown]
  - Cough [Unknown]
  - Dysphonia [Unknown]
  - Off label use [Unknown]
  - Device malfunction [Unknown]
